FAERS Safety Report 8989945 (Version 1)
Quarter: 2012Q4

REPORT INFORMATION
  Report Type: 
  Country: DE (occurrence: DE)
  Receive Date: 20121228
  Receipt Date: 20121228
  Transmission Date: 20130627
  Serious: Yes (Other)
  Sender: FDA-Public Use
  Company Number: DE-ELI_LILLY_AND_COMPANY-DE201212006383

PATIENT
  Sex: Female

DRUGS (6)
  1. FORSTEO [Suspect]
     Indication: OSTEOPOROSIS
     Dosage: UNK UNK, qd
     Route: 058
     Dates: start: 20120616, end: 20121202
  2. HUMALOG [Concomitant]
     Dosage: UNK UNK, qid
     Route: 065
  3. INSULIN [Concomitant]
     Dosage: UNK UNK, qid
     Route: 065
  4. ARAVA [Concomitant]
     Dosage: UNK, unknown
     Route: 065
  5. DEKRISTOL [Concomitant]
     Dosage: UNK UNK, other
  6. CORTISONE [Concomitant]
     Dosage: UNK, unknown
     Route: 065

REACTIONS (2)
  - Renal impairment [Not Recovered/Not Resolved]
  - Blood parathyroid hormone increased [Not Recovered/Not Resolved]
